FAERS Safety Report 4369450-6 (Version None)
Quarter: 2004Q2

REPORT INFORMATION
  Report Type: 
  Country: None (occurrence: None)
  Receive Date: 20040527
  Receipt Date: 20040510
  Transmission Date: 20050107
  Serious: Yes (Death, Other)
  Sender: FDA-Public Use
  Company Number: USA040567060

PATIENT
  Sex: Male

DRUGS (2)
  1. ZYPREXA [Suspect]
     Dosage: UNK
     Route: 065
  2. ABILIFY [Concomitant]

REACTIONS (2)
  - DIABETES MELLITUS [None]
  - PULMONARY OEDEMA [None]
